FAERS Safety Report 20533588 (Version 2)
Quarter: 2023Q1

REPORT INFORMATION
  Report Type: Spontaneous
  Country: PL (occurrence: PL)
  Receive Date: 20220301
  Receipt Date: 20230310
  Transmission Date: 20230418
  Serious: Yes (Other)
  Sender: FDA-Public Use
  Company Number: PL-EMA-DD-20220217-pogaku_s-184539

PATIENT
  Age: 10 Year
  Sex: Male

DRUGS (4)
  1. DOXORUBICIN HYDROCHLORIDE [Suspect]
     Active Substance: DOXORUBICIN HYDROCHLORIDE
     Dosage: 320 MG/M2
     Route: 065
  2. IFOSFAMIDE [Suspect]
     Active Substance: IFOSFAMIDE
     Dosage: 54000 MG/M2 (54000 MILLIGRAM/SQ. METER)
     Route: 065
  3. CACTINOMYCIN [Suspect]
     Active Substance: CACTINOMYCIN
     Dosage: 7.5 MG/M2
  4. VINCRISTINE [Suspect]
     Active Substance: VINCRISTINE
     Dosage: 19.5 MG/M2 (19.5 MILLIGRAM/SQ. METER)
     Route: 065

REACTIONS (2)
  - Neutropenia [Not Recovered/Not Resolved]
  - Streptococcal sepsis [Not Recovered/Not Resolved]
